FAERS Safety Report 7806536-5 (Version None)
Quarter: 2011Q4

REPORT INFORMATION
  Report Type: 
  Country: None (occurrence: None)
  Receive Date: 20111011
  Receipt Date: 20110926
  Transmission Date: 20120403
  Serious: Yes (Other)
  Sender: FDA-Public Use
  Company Number: JP-TYCO HEALTHCARE/MALLINCKRODT-T201101296

PATIENT
  Age: 80 Year
  Sex: Female

DRUGS (2)
  1. OPTIRAY 160 [Suspect]
     Indication: PERCUTANEOUS CORONARY INTERVENTION
     Dosage: 88 ML, SINGLE
     Dates: start: 20110623, end: 20110623
  2. DRUG FOR ASTHMA [Concomitant]
     Indication: ASTHMA

REACTIONS (2)
  - LARYNGEAL OEDEMA [None]
  - RASH [None]
